FAERS Safety Report 6329999-3 (Version None)
Quarter: 2009Q3

REPORT INFORMATION
  Report Type: 
  Country: None (occurrence: None)
  Receive Date: 20090825
  Receipt Date: 20090817
  Transmission Date: 20100115
  Serious: Yes (Death, Hospitalization, Other)
  Sender: FDA-Public Use
  Company Number: 062-50794-09070380

PATIENT
  Age: 85 Year
  Sex: Male
  Weight: 74 kg

DRUGS (6)
  1. VIDAZA [Suspect]
     Indication: DRUG USE FOR UNKNOWN INDICATION
     Dosage: 75 MG, 1 IN 1 D, SUBCUTANEOUS
     Route: 058
  2. FUROSEMIDE [Concomitant]
  3. DYAZIDE [Concomitant]
  4. LEVOFLOXACIN [Concomitant]
  5. ENALAPRIL MALEATE [Concomitant]
  6. NOVALGIN (METAMIZOLE SODIUM) [Concomitant]

REACTIONS (10)
  - ACUTE MYELOID LEUKAEMIA [None]
  - FEBRILE NEUTROPENIA [None]
  - IMPETIGO [None]
  - KARNOFSKY SCALE WORSENED [None]
  - MALIGNANT NEOPLASM PROGRESSION [None]
  - NO THERAPEUTIC RESPONSE [None]
  - PANCYTOPENIA [None]
  - PNEUMONIA [None]
  - PSEUDOMONAS INFECTION [None]
  - PULMONARY EMBOLISM [None]
